FAERS Safety Report 15159543 (Version 2)
Quarter: 2018Q3

REPORT INFORMATION
  Report Type: Report from Study
  Country: MX (occurrence: MX)
  Receive Date: 20180718
  Receipt Date: 20180802
  Transmission Date: 20181010
  Serious: Yes (Other)
  Sender: FDA-Public Use
  Company Number: PHHY2018MX043796

PATIENT
  Sex: Female

DRUGS (4)
  1. CO?DIOVAN [Suspect]
     Active Substance: HYDROCHLOROTHIAZIDE\VALSARTAN
     Indication: HYPERTENSION
     Dosage: 1 DF (HYDROCHLOROTHIAZIDE 12.5 MG, VALSARTAN 160 MG), QD
     Route: 048
  2. CONCORD 693 [Concomitant]
     Indication: BLOOD PRESSURE ABNORMAL
     Dosage: 1 DF (5.0), QD
     Route: 065
  3. CONCORD 693 [Concomitant]
     Indication: CARDIAC DISORDER
  4. CONCOR [Concomitant]
     Active Substance: BISOPROLOL FUMARATE
     Indication: PRODUCT USED FOR UNKNOWN INDICATION
     Dosage: 5 MG, UNK
     Route: 065

REACTIONS (7)
  - Diabetes mellitus [Unknown]
  - Headache [Unknown]
  - Blood pressure increased [Not Recovered/Not Resolved]
  - Blood glucose increased [Unknown]
  - Kidney infection [Recovering/Resolving]
  - Malaise [Unknown]
  - Drug ineffective [Unknown]
